FAERS Safety Report 6408863-5 (Version None)
Quarter: 2009Q4

REPORT INFORMATION
  Report Type: 
  Country: None (occurrence: None)
  Receive Date: 20091021
  Receipt Date: 20091012
  Transmission Date: 20100525
  Serious: Yes (Life-Threatening, Hospitalization)
  Sender: FDA-Public Use
  Company Number: JP-AMGEN-US368216

PATIENT
  Sex: Female
  Weight: 34 kg

DRUGS (22)
  1. ENBREL [Suspect]
     Indication: RHEUMATOID ARTHRITIS
     Route: 058
     Dates: start: 20070928, end: 20080318
  2. ENBREL [Suspect]
     Route: 058
     Dates: start: 20080416, end: 20080511
  3. ENBREL [Suspect]
     Route: 058
     Dates: start: 20080527, end: 20080703
  4. PREDONINE [Suspect]
     Indication: RHEUMATOID ARTHRITIS
     Route: 048
     Dates: start: 20070727, end: 20071212
  5. PREDONINE [Suspect]
     Route: 048
     Dates: start: 20071213
  6. PREDNISOLONE [Suspect]
     Indication: RHEUMATOID ARTHRITIS
     Route: 048
     Dates: start: 20071213
  7. PREDNISOLONE [Suspect]
     Route: 048
  8. GANATON [Concomitant]
     Dosage: UNKNOWN
     Route: 048
  9. GASMOTIN [Concomitant]
     Indication: GASTRITIS
     Route: 048
  10. PAXIL [Concomitant]
     Indication: DEPRESSION
     Route: 048
  11. TAKEPRON [Concomitant]
     Indication: GASTRIC ULCER
     Route: 048
     Dates: start: 20070928
  12. LOXONIN [Concomitant]
     Indication: RHEUMATOID ARTHRITIS
     Route: 048
     Dates: end: 20080221
  13. LIPITOR [Concomitant]
     Indication: HYPERLIPIDAEMIA
     Route: 048
  14. ALPRAZOLAM [Concomitant]
     Dosage: UNKNOWN
     Route: 048
  15. EBRANTIL [Concomitant]
     Indication: DYSURIA
     Dosage: UNKNOWN
     Route: 048
  16. ROHYPNOL [Concomitant]
     Indication: INSOMNIA
     Route: 048
  17. ARTIST [Concomitant]
     Indication: ANGINA PECTORIS
     Route: 048
     Dates: start: 20071228, end: 20080214
  18. CELECTOL [Concomitant]
     Indication: ARRHYTHMIA
     Route: 048
     Dates: start: 20080214
  19. MOBIC [Concomitant]
     Indication: RHEUMATOID ARTHRITIS
     Route: 048
     Dates: start: 20080221, end: 20080521
  20. CELECOXIB [Concomitant]
     Indication: RHEUMATOID ARTHRITIS
     Route: 048
     Dates: start: 20080521
  21. PROGRAF [Concomitant]
     Indication: RHEUMATOID ARTHRITIS
     Route: 048
     Dates: start: 20080128, end: 20080320
  22. TACROLIMUS [Concomitant]
     Indication: RHEUMATOID ARTHRITIS
     Route: 048
     Dates: start: 20070903, end: 20080228

REACTIONS (2)
  - BRONCHOPULMONARY ASPERGILLOSIS [None]
  - PULMONARY TUBERCULOSIS [None]
